FAERS Safety Report 4742529-2 (Version None)
Quarter: 2005Q3

REPORT INFORMATION
  Report Type: 
  Country: None (occurrence: None)
  Receive Date: 20050808
  Receipt Date: 20050726
  Transmission Date: 20060218
  Serious: Yes (Hospitalization)
  Sender: FDA-Public Use
  Company Number: 2005-BP-12627EX

PATIENT
  Age: 66 Year
  Sex: Male

DRUGS (20)
  1. PREDNISONE TAB [Suspect]
     Indication: PROSTATE CANCER
     Dosage: 10 MG DAILY (NR), PO
     Route: 048
     Dates: start: 20050225
  2. IROFULVEN (IROFULVEN) [Suspect]
     Indication: PROSTATE CANCER
     Dosage: 0.4 MG/KG ON DAY 1 AND 15 (NR), IV
     Route: 042
     Dates: start: 20050225, end: 20050617
  3. CAPECITABINE (CAPECITABINE) [Suspect]
     Dosage: 2250 MG TWICE DAILY ON DAY 1 TO 14 AND ONCE ON DAY 15 OF 28 DAY CYCLE, PO
     Route: 048
     Dates: start: 20050225, end: 20050422
  4. CAPECITABINE (CAPECITABINE) [Suspect]
     Dosage: 2250 MG TWICE DAILY ON DAY 1 TO 14 AND ONCE ON DAY 15 OF 28 DAY CYCLE, PO
     Route: 048
     Dates: start: 20050423, end: 20050617
  5. LEUPRORELIN (LEUPRORELIN) [Concomitant]
  6. BICALUTAMIDE (BICALUTAMIDE) [Concomitant]
  7. LOTREL [Concomitant]
  8. ATORVASTATIN CALCIUM [Concomitant]
  9. TAMSULOSIN HCL [Concomitant]
  10. FAMOTIDINE [Concomitant]
  11. ZOLPIDEM TARTRATE [Concomitant]
  12. MAGNESIUM CITRATE (MAGNESIUM CITRATE) [Concomitant]
  13. WARFARIN (WARFARIN) [Concomitant]
  14. LORTAB [Concomitant]
  15. SENOKOT (SENNA ALEXANDRINA) [Concomitant]
  16. MORPHINE [Concomitant]
  17. IBUPROFEN [Concomitant]
  18. ACETAMINOPHEN [Concomitant]
  19. DARBEPOETIN ALFA (DARBEPOETIN ALFA) [Concomitant]
  20. ZOLEDRONIC ACID (ZOLEDRONIC ACID) [Concomitant]

REACTIONS (8)
  - ANAEMIA [None]
  - ASTHENIA [None]
  - BLOOD GLUCOSE INCREASED [None]
  - BLOOD SODIUM DECREASED [None]
  - BLOOD UREA INCREASED [None]
  - DEHYDRATION [None]
  - PLATELET COUNT DECREASED [None]
  - PYREXIA [None]
